FAERS Safety Report 8049383-4 (Version None)
Quarter: 2012Q1

REPORT INFORMATION
  Report Type: 
  Country: None (occurrence: None)
  Receive Date: 20120117
  Receipt Date: 20120110
  Transmission Date: 20120608
  Serious: Yes (Other)
  Sender: FDA-Public Use
  Company Number: US-ABBOTT-12P-163-0891463-00

PATIENT
  Sex: Male
  Weight: 72.64 kg

DRUGS (2)
  1. NIASPAN [Suspect]
     Indication: PRODUCT USED FOR UNKNOWN INDICATION
     Dosage: DAILY DOSE: 1000MG
     Dates: start: 20020801
  2. UNKNOWN MEDICATIONS [Concomitant]
     Indication: PRODUCT USED FOR UNKNOWN INDICATION

REACTIONS (4)
  - RENAL TRANSPLANT [None]
  - PANCREAS TRANSPLANT [None]
  - CORONARY ARTERY BYPASS [None]
  - SKIN BURNING SENSATION [None]
